FAERS Safety Report 10032701 (Version 1)
Quarter: 2014Q1

REPORT INFORMATION
  Report Type: Spontaneous
  Country: GB (occurrence: GB)
  Receive Date: 20140324
  Receipt Date: 20140324
  Transmission Date: 20141002
  Serious: Yes (Disabling)
  Sender: FDA-Public Use
  Company Number: GB-GLAXOSMITHKLINE-B0978304A

PATIENT
  Age: 74 Year
  Sex: Male

DRUGS (9)
  1. SALMETEROL + FLUTICASONE [Suspect]
  2. LATANOPROST [Concomitant]
  3. SEREVENT [Concomitant]
     Route: 055
  4. SIMVADOR [Concomitant]
  5. VENTOLIN [Concomitant]
  6. ASPIRIN [Concomitant]
  7. DIGOXIN [Concomitant]
  8. LANSOPRAZOLE [Concomitant]
  9. TIOTROPIUM [Concomitant]

REACTIONS (1)
  - Eye haemorrhage [Unknown]
